FAERS Safety Report 9735600 (Version 1)
Quarter: 2013Q4

REPORT INFORMATION
  Report Type: Spontaneous
  Country: IN (occurrence: IN)
  Receive Date: 20131206
  Receipt Date: 20131206
  Transmission Date: 20140711
  Serious: Yes (Hospitalization)
  Sender: FDA-Public Use
  Company Number: IN-ASTRAZENECA-2013SE87276

PATIENT
  Age: 5 Year
  Sex: 0
  Weight: 15 kg

DRUGS (5)
  1. BUPIVACAINE [Suspect]
     Indication: LOCAL ANAESTHESIA
     Route: 053
  2. CLONIDINE [Concomitant]
     Indication: LOCAL ANAESTHESIA
     Route: 053
  3. O2:N2O [Concomitant]
     Indication: MAINTENANCE OF ANAESTHESIA
     Route: 055
  4. SEVOFLURANE [Concomitant]
     Indication: MAINTENANCE OF ANAESTHESIA
     Route: 055
  5. FENTANYL [Concomitant]
     Indication: TACHYCARDIA
     Dosage: 1 UG/KG

REACTIONS (2)
  - Sensorimotor disorder [Recovered/Resolved]
  - Drug administration error [Unknown]
